FAERS Safety Report 21295576 (Version 1)
Quarter: 2022Q3

REPORT INFORMATION
  Report Type: Spontaneous
  Country: CA (occurrence: CA)
  Receive Date: 20220905
  Receipt Date: 20220905
  Transmission Date: 20221026
  Serious: Yes (Other)
  Sender: FDA-Public Use
  Company Number: CA-JNJFOC-20220905505

PATIENT
  Age: 52 Year
  Sex: Male
  Weight: 68 kg

DRUGS (3)
  1. REMICADE [Suspect]
     Active Substance: INFLIXIMAB
     Indication: Crohn^s disease
     Route: 041
  2. BUDESONIDE [Concomitant]
     Active Substance: BUDESONIDE
  3. MESALAMINE [Concomitant]
     Active Substance: MESALAMINE
     Route: 054

REACTIONS (7)
  - Surgery [Not Recovered/Not Resolved]
  - Mental disorder [Not Recovered/Not Resolved]
  - Anal fissure [Not Recovered/Not Resolved]
  - Weight increased [Not Recovered/Not Resolved]
  - Fistula [Not Recovered/Not Resolved]
  - Off label use [Not Recovered/Not Resolved]
  - Intentional product use issue [Not Recovered/Not Resolved]
